FAERS Safety Report 4946457-9 (Version None)
Quarter: 2006Q1

REPORT INFORMATION
  Report Type: 
  Country: None (occurrence: None)
  Receive Date: 20060317
  Receipt Date: 20060309
  Transmission Date: 20060701
  Serious: Yes (Hospitalization)
  Sender: FDA-Public Use
  Company Number: US-AVENTIS-200612404US

PATIENT
  Age: 65 Year
  Sex: Female

DRUGS (3)
  1. KETEK [Suspect]
     Dosage: DOSE: UNK
  2. DILANTIN [Concomitant]
     Dosage: DOSE: UNK
  3. BENICAR                                 /USA/ [Concomitant]
     Dosage: DOSE: UNK

REACTIONS (1)
  - BLOOD SODIUM DECREASED [None]
